FAERS Safety Report 5025442-5 (Version None)
Quarter: 2006Q2

REPORT INFORMATION
  Report Type: 
  Country: None (occurrence: None)
  Receive Date: 20060608
  Receipt Date: 20060530
  Transmission Date: 20061013
  Serious: Yes (Disabling)
  Sender: FDA-Public Use
  Company Number: 2006062596

PATIENT
  Age: 70 Year
  Sex: Female
  Weight: 72.5755 kg

DRUGS (5)
  1. LIPITOR [Suspect]
     Indication: BLOOD CHOLESTEROL INCREASED
     Dosage: 40 MG (40 MG, 1 IN 1 D), ORAL
     Route: 048
     Dates: end: 20060404
  2. ZOLOFT [Concomitant]
  3. SOMA [Concomitant]
  4. TYLOX (OXYCODONE HYDROCHLORIDE, PARACETAMOL) [Concomitant]
  5. XANAX [Concomitant]

REACTIONS (10)
  - ASTHENIA [None]
  - BONE SCAN ABNORMAL [None]
  - DIFFICULTY IN WALKING [None]
  - DYSSTASIA [None]
  - GENERAL PHYSICAL HEALTH DETERIORATION [None]
  - HYPOAESTHESIA [None]
  - IMPAIRED WORK ABILITY [None]
  - MUSCLE DISORDER [None]
  - MUSCULAR WEAKNESS [None]
  - PERIPHERAL COLDNESS [None]
